FAERS Safety Report 5281772-3 (Version None)
Quarter: 2007Q1

REPORT INFORMATION
  Report Type: 
  Country: None (occurrence: None)
  Receive Date: 20070330
  Receipt Date: 20070322
  Transmission Date: 20070707
  Serious: Yes (Hospitalization)
  Sender: FDA-Public Use
  Company Number: FR-GLAXOSMITHKLINE-B0463953A

PATIENT
  Age: 6 Year
  Sex: Female
  Weight: 29 kg

DRUGS (3)
  1. ZOPHREN [Suspect]
     Indication: OPTIC TRACT GLIOMA
     Dosage: 4MG CYCLIC
     Route: 042
     Dates: start: 20070306, end: 20070306
  2. ONCOVIN [Suspect]
     Indication: OPTIC TRACT GLIOMA
     Dosage: 1.4MG CYCLIC
     Route: 042
     Dates: start: 20070306, end: 20070306
  3. CARBOPLATIN [Suspect]
     Indication: OPTIC TRACT GLIOMA
     Dosage: 530MG CYCLIC
     Route: 042
     Dates: start: 20070306, end: 20070306

REACTIONS (12)
  - ABDOMINAL PAIN [None]
  - ANGIOEDEMA [None]
  - CYANOSIS [None]
  - DIARRHOEA [None]
  - ERYTHEMA [None]
  - FACE OEDEMA [None]
  - HYPOTENSION [None]
  - HYPOTONIA [None]
  - MALAISE [None]
  - PRURITUS [None]
  - TACHYCARDIA [None]
  - VOMITING [None]
